FAERS Safety Report 4867406-8 (Version None)
Quarter: 2005Q4

REPORT INFORMATION
  Report Type: 
  Country: None (occurrence: None)
  Receive Date: 20051228
  Receipt Date: 20051219
  Transmission Date: 20060501
  Serious: Yes (Hospitalization)
  Sender: FDA-Public Use
  Company Number: FR-SOLVAY-00205004256

PATIENT
  Age: 43 Year
  Sex: Female

DRUGS (2)
  1. UTROGESTAN [Suspect]
     Indication: ILL-DEFINED DISORDER
     Dosage: DAILY DOSE:  UNKNOWN
     Route: 048
     Dates: start: 19980101
  2. UTROGESTAN [Suspect]
     Dosage: DAILY DOSE:  UNKNOWN
     Route: 048

REACTIONS (1)
  - HEPATIC ADENOMA [None]
